FAERS Safety Report 6763746-6 (Version None)
Quarter: 2010Q2

REPORT INFORMATION
  Report Type: 
  Country: None (occurrence: None)
  Receive Date: 20100610
  Receipt Date: 20100602
  Transmission Date: 20101027
  Serious: Yes (Hospitalization)
  Sender: FDA-Public Use
  Company Number: FR-ROCHE-698622

PATIENT
  Sex: Female
  Weight: 46.6 kg

DRUGS (8)
  1. BEVACIZUMAB [Suspect]
     Indication: BREAST CANCER
     Dosage: LAST DOSE PRIOR TO SAE: 6 APRIL 2010, CUMLATIVE DOSE: 3375 MG, FREQUENCY: NOT REPORTED
     Route: 042
     Dates: start: 20100111
  2. DOCETAXEL [Suspect]
     Indication: BREAST CANCER
     Dosage: LAST DOSE PRIOR TO SAE: 6 APRIL 10, FREQUENCY: NOT REPORTED, PERMANENTLY DISCONTINUED.
     Route: 042
     Dates: start: 20100406
  3. FLUOROURACIL [Suspect]
     Indication: BREAST CANCER
     Dosage: LAST DOSE PRIOR TO SAE: 15 MARCH 10, FREQUENCY: NOT REPORTED, CUMULATIVE DOSE: 2890 MG
     Route: 042
     Dates: start: 20100111
  4. ENDOXAN [Suspect]
     Indication: BREAST CANCER
     Dosage: CUMULATIVE DOSE: 2890 MG
     Route: 042
     Dates: start: 20100111, end: 20100315
  5. EPIRUBICIN [Suspect]
     Indication: BREAST CANCER
     Dosage: CUMULATIVE DOSE: 578 MG
     Route: 042
     Dates: start: 20100111, end: 20100315
  6. IXPRIM [Concomitant]
     Dates: start: 20081201
  7. PANTOPRAZOLE SODIUM [Concomitant]
     Dates: start: 20100101
  8. XYZAL [Concomitant]
     Dates: start: 20100219

REACTIONS (1)
  - HERPES VIRUS INFECTION [None]
